FAERS Safety Report 7293132-4 (Version None)
Quarter: 2011Q1

REPORT INFORMATION
  Report Type: 
  Country: None (occurrence: None)
  Receive Date: 20110203
  Receipt Date: 20101213
  Transmission Date: 20110831
  Serious: Yes (Hospitalization)
  Sender: FDA-Public Use
  Company Number: 014735

PATIENT
  Sex: Female
  Weight: 103.9 kg

DRUGS (32)
  1. METHADONE [Concomitant]
  2. DAILY MULTIVITAMIN [Concomitant]
  3. STARLIX [Concomitant]
  4. FERROUS SULFATE TAB [Concomitant]
  5. LASIX [Concomitant]
  6. SINGULAIR [Concomitant]
  7. ALLEGRA D 24 HOUR [Concomitant]
  8. ASPIRIN [Concomitant]
  9. UNKNOWN [Concomitant]
  10. LESCOL XL [Concomitant]
  11. CELEXA [Concomitant]
  12. FOLIC ACID [Concomitant]
  13. K-DUR [Concomitant]
  14. HYZAAR [Concomitant]
  15. ADVAIR DISKUS 100/50 [Concomitant]
  16. TAPAZOLE [Concomitant]
  17. BENTAYL [Concomitant]
  18. CIMZIA [Suspect]
     Indication: RHEUMATOID ARTHRITIS
     Dosage: 200 MG 1X/2 WEEKS; SUBCUTANEOUS
     Route: 058
     Dates: start: 20100222
  19. LEXAPRO [Concomitant]
  20. CALTRATE [Concomitant]
  21. CHLORASEPTIC [Concomitant]
  22. ZITHROMAX [Concomitant]
  23. MAGNESIUM OXIDE [Concomitant]
  24. VITAMIN B NOS [Concomitant]
  25. METFORMIN [Concomitant]
  26. METHOTREXATE [Concomitant]
  27. OXYCODONE [Concomitant]
  28. ZANTAC [Concomitant]
  29. NEXIUM [Concomitant]
  30. LYRICA [Concomitant]
  31. DEPO-MEDROL [Concomitant]
  32. C-VITAMIN [Concomitant]

REACTIONS (25)
  - DIARRHOEA [None]
  - DEPRESSED LEVEL OF CONSCIOUSNESS [None]
  - FAECAL INCONTINENCE [None]
  - DRUG DEPENDENCE [None]
  - VOMITING [None]
  - INSOMNIA [None]
  - SEPSIS [None]
  - DRUG ABUSE [None]
  - HYPOAESTHESIA [None]
  - BRONCHIAL SECRETION RETENTION [None]
  - SINUSITIS [None]
  - SYNCOPE [None]
  - MIGRAINE [None]
  - ANAEMIA [None]
  - MENTAL STATUS CHANGES [None]
  - OVERDOSE [None]
  - HYPOKALAEMIA [None]
  - PNEUMONIA ASPIRATION [None]
  - CHRONIC OBSTRUCTIVE PULMONARY DISEASE [None]
  - CONDITION AGGRAVATED [None]
  - PARAESTHESIA [None]
  - SCAR [None]
  - UNRESPONSIVE TO STIMULI [None]
  - MUSCULAR WEAKNESS [None]
  - BLOOD GLUCOSE INCREASED [None]
